FAERS Safety Report 8176018 (Version 2)
Quarter: 2013Q2

REPORT INFORMATION
  Report Type: Spontaneous
  Country: US (occurrence: US)
  Receive Date: 20111011
  Receipt Date: 20130513
  Transmission Date: 20140414
  Serious: Yes (Hospitalization, Disabling)
  Sender: FDA-Public Use
  Company Number: US-GLAXOSMITHKLINE-B0754318A

PATIENT
  Age: 56 Year
  Sex: Male
  Weight: 101.4 kg

DRUGS (1)
  1. AVANDIA [Suspect]
     Indication: DIABETES MELLITUS
     Route: 048
     Dates: start: 20040908, end: 200704

REACTIONS (3)
  - Myocardial infarction [Not Recovered/Not Resolved]
  - Pulmonary hypertension [Unknown]
  - Cardiac failure congestive [Unknown]
